FAERS Safety Report 22326488 (Version 1)
Quarter: 2023Q2

REPORT INFORMATION
  Report Type: Spontaneous
  Country: US (occurrence: US)
  Receive Date: 20230516
  Receipt Date: 20230516
  Transmission Date: 20230722
  Serious: No
  Sender: FDA-Public Use
  Company Number: US-RADIUS HEALTH INC.-2022US003677

PATIENT
  Age: 72 Year
  Sex: Female

DRUGS (1)
  1. TYMLOS [Suspect]
     Active Substance: ABALOPARATIDE
     Indication: Osteoporosis
     Dosage: 80 MCG, QD
     Route: 058
     Dates: start: 20220801, end: 20220801

REACTIONS (10)
  - Gastrointestinal disorder [Recovering/Resolving]
  - Retching [Recovering/Resolving]
  - Sleep disorder [Recovering/Resolving]
  - Abdominal discomfort [Unknown]
  - Headache [Unknown]
  - Back pain [Unknown]
  - Heart rate increased [Unknown]
  - Vomiting [Recovering/Resolving]
  - Nausea [Unknown]
  - Palpitations [Unknown]

NARRATIVE: CASE EVENT DATE: 20220801
